FAERS Safety Report 5020976-1 (Version None)
Quarter: 2006Q2

REPORT INFORMATION
  Report Type: 
  Country: None (occurrence: None)
  Receive Date: 20060606
  Receipt Date: 20060606
  Transmission Date: 20061013
  Serious: No
  Sender: FDA-Public Use
  Company Number: None

PATIENT
  Sex: Female
  Weight: 63.9572 kg

DRUGS (1)
  1. FOSAMAX [Suspect]
     Indication: OSTEOPOROSIS
     Dosage: 70 MG TABLET   ONCE WEEKLY   PO
     Route: 048

REACTIONS (4)
  - ABDOMINAL PAIN UPPER [None]
  - JAW DISORDER [None]
  - RESORPTION BONE INCREASED [None]
  - TENDERNESS [None]
